FAERS Safety Report 6558020-7 (Version None)
Quarter: 2010Q1

REPORT INFORMATION
  Report Type: 
  Country: None (occurrence: None)
  Receive Date: 20100129
  Receipt Date: 20100119
  Transmission Date: 20100710
  Serious: Yes (Hospitalization)
  Sender: FDA-Public Use
  Company Number: GB-ELI_LILLY_AND_COMPANY-GB200912000914

PATIENT
  Sex: Female
  Weight: 57.3 kg

DRUGS (5)
  1. CYMBALTA [Suspect]
     Indication: DEPRESSION
     Dosage: 30 MG, UNKNOWN
     Route: 048
     Dates: start: 20090601
  2. LEVOTHYROXINE SODIUM [Concomitant]
     Indication: HYPOTHYROIDISM
     Dosage: 25 MG, UNKNOWN
     Route: 048
  3. CANDESARTAN CILEXETIL [Concomitant]
     Dosage: 16 MG, UNKNOWN
     Route: 048
     Dates: end: 20100111
  4. ATENOLOL [Concomitant]
     Dosage: 50 MG, UNKNOWN
     Route: 048
     Dates: end: 20100104
  5. PREGABALIN [Concomitant]
     Indication: ANXIETY
     Dosage: 50 MG, UNKNOWN
     Route: 048
     Dates: start: 20071214

REACTIONS (5)
  - ATAXIA [None]
  - DIZZINESS [None]
  - FALL [None]
  - HYPONATRAEMIA [None]
  - MALAISE [None]
